FAERS Safety Report 9783061 (Version 1)
Quarter: 2013Q4

REPORT INFORMATION
  Report Type: Spontaneous
  Country: US (occurrence: None)
  Receive Date: 20131223
  Receipt Date: 20131223
  Transmission Date: 20140711
  Serious: No
  Sender: FDA-Public Use
  Company Number: EUS-2011-00793

PATIENT
  Age: 12 Year
  Sex: Female

DRUGS (6)
  1. ERWINASE (ASPARAGINASE) [Suspect]
     Indication: ACUTE LYMPHOCYTIC LEUKAEMIA
     Route: 030
     Dates: start: 20110112, end: 20110223
  2. ZOFRAN (ONDANSETRON) (ONDANSETRON) [Concomitant]
  3. BENADRYL (DIPHENHYDRAMINDE) (DIPHENHYDRAMINDE) [Concomitant]
  4. DEXAMETHASONE (DEXAMETHASONE) [Concomitant]
  5. VINCRISTINE (VINCRISTINE) (UNKNOWN) [Concomitant]
  6. DOXORUBICIN (DOXORUBICIN) [Concomitant]

REACTIONS (1)
  - Hypersensitivity [None]
